FAERS Safety Report 10199433 (Version 1)
Quarter: 2014Q2

REPORT INFORMATION
  Report Type: Spontaneous
  Country: US (occurrence: None)
  Receive Date: 20140523
  Receipt Date: 20140523
  Transmission Date: 20141212
  Serious: Yes (Life-Threatening, Disabling, Other)
  Sender: FDA-Public Use
  Company Number: None

PATIENT
  Age: 62 Year
  Sex: Male
  Weight: 62 kg

DRUGS (1)
  1. MUCODYNE CARBOCISTEINE [Suspect]
     Indication: INCREASED VISCOSITY OF BRONCHIAL SECRETION
     Route: 048

REACTIONS (4)
  - Dyspnoea [None]
  - Vomiting [None]
  - Aphagia [None]
  - Reaction to drug excipients [None]
